FAERS Safety Report 5838475-3 (Version None)
Quarter: 2008Q3

REPORT INFORMATION
  Report Type: 
  Country: None (occurrence: None)
  Receive Date: 20080806
  Receipt Date: 20080730
  Transmission Date: 20090109
  Serious: Yes (Death)
  Sender: FDA-Public Use
  Company Number: 163-21880-08071760

PATIENT
  Age: 46 Year
  Sex: Female

DRUGS (2)
  1. REVLIMID [Suspect]
     Indication: MULTIPLE MYELOMA
     Dosage: 10-25MG, DAILY, ORAL 10 MG, 1 IN 1 D, ORAL
     Route: 048
     Dates: start: 20070928, end: 20080101
  2. REVLIMID [Suspect]
     Indication: MULTIPLE MYELOMA
     Dosage: 10-25MG, DAILY, ORAL 10 MG, 1 IN 1 D, ORAL
     Route: 048
     Dates: start: 20080104, end: 20080201

REACTIONS (5)
  - BLOOD HUMAN CHORIONIC GONADOTROPIN ABNORMAL [None]
  - CANDIDA SEPSIS [None]
  - CLOSTRIDIUM DIFFICILE COLITIS [None]
  - ESCHERICHIA SEPSIS [None]
  - RECTAL HAEMORRHAGE [None]
